FAERS Safety Report 9687289 (Version 1)
Quarter: 2013Q4

REPORT INFORMATION
  Report Type: Spontaneous
  Country: US (occurrence: US)
  Receive Date: 20131114
  Receipt Date: 20131114
  Transmission Date: 20140711
  Serious: No
  Sender: FDA-Public Use
  Company Number: US-009507513-1311USA004074

PATIENT
  Age: 88 Year
  Sex: Female

DRUGS (2)
  1. DULERA [Suspect]
     Indication: CHRONIC OBSTRUCTIVE PULMONARY DISEASE
     Dosage: 100 MICROGRAM/5 MICROGRAM/ TWO PUFFS, TWICE DAILY
     Route: 055
     Dates: start: 20131030, end: 20131106
  2. COMBIVENT [Concomitant]

REACTIONS (2)
  - Dysphonia [Recovering/Resolving]
  - Off label use [Unknown]
